FAERS Safety Report 6572330-9 (Version None)
Quarter: 2010Q1

REPORT INFORMATION
  Report Type: 
  Country: None (occurrence: None)
  Receive Date: 20100205
  Receipt Date: 20100126
  Transmission Date: 20100710
  Serious: Yes (Other)
  Sender: FDA-Public Use
  Company Number: GB-WATSON-2010-01145

PATIENT
  Age: 63 Year
  Sex: Male

DRUGS (1)
  1. MINOCYCLINE HCL [Suspect]
     Indication: ASPERGILLOSIS
     Dosage: UNK

REACTIONS (3)
  - AORTIC VALVE DISEASE [None]
  - PIGMENTATION DISORDER [None]
  - SKIN DISCOLOURATION [None]
